FAERS Safety Report 7643761-0 (Version None)
Quarter: 2011Q3

REPORT INFORMATION
  Report Type: 
  Country: None (occurrence: None)
  Receive Date: 20110722
  Receipt Date: 20110709
  Transmission Date: 20111222
  Serious: Yes (Hospitalization)
  Sender: FDA-Public Use
  Company Number: 2011AP001446

PATIENT
  Age: 80 Year
  Sex: Female

DRUGS (5)
  1. POLYETHYLENE GLYCOL [Suspect]
     Indication: COLONOSCOPY
  2. LISINOPRIL [Concomitant]
  3. HYDROCHLOROTHIAZIDE [Suspect]
     Indication: HYPERTENSION
  4. BISACODYL [Suspect]
     Indication: COLONOSCOPY
  5. PROPYLTHIOURACIL [Concomitant]

REACTIONS (13)
  - BLOOD POTASSIUM DECREASED [None]
  - VOMITING [None]
  - SOMNOLENCE [None]
  - NAUSEA [None]
  - UNRESPONSIVE TO STIMULI [None]
  - BLOOD PRESSURE DECREASED [None]
  - ASTHENIA [None]
  - BRAIN OEDEMA [None]
  - DIARRHOEA [None]
  - WATER INTOXICATION [None]
  - GAIT DISTURBANCE [None]
  - HYPONATRAEMIA [None]
  - POSTURING [None]
